FAERS Safety Report 19864607 (Version 1)
Quarter: 2021Q3

REPORT INFORMATION
  Report Type: Other
  Country: US (occurrence: US)
  Receive Date: 20210921
  Receipt Date: 20210921
  Transmission Date: 20211014
  Serious: No
  Sender: FDA-Public Use
  Company Number: US-ACORDA-ACO_170015_2021

PATIENT
  Age: 84 Year
  Sex: Male

DRUGS (3)
  1. INBRIJA [Suspect]
     Active Substance: LEVODOPA
     Indication: PARKINSON^S DISEASE
     Dosage: 84 MILLIGRAM, PRN (NOT TO EXCEED 5 DOSES A DAY)
     Dates: start: 20210714
  2. INBRIJA [Suspect]
     Active Substance: LEVODOPA
     Indication: ON AND OFF PHENOMENON
  3. SINEMET [Concomitant]
     Active Substance: CARBIDOPA\LEVODOPA
     Indication: PRODUCT USED FOR UNKNOWN INDICATION
     Dosage: 50?200 EVERY 8 HRS
     Route: 065

REACTIONS (2)
  - Intentional underdose [Unknown]
  - Cognitive disorder [Not Recovered/Not Resolved]

NARRATIVE: CASE EVENT DATE: 20210714
